FAERS Safety Report 5537272-6 (Version None)
Quarter: 2007Q4

REPORT INFORMATION
  Report Type: 
  Country: None (occurrence: None)
  Receive Date: 20071207
  Receipt Date: 20061110
  Transmission Date: 20080405
  Serious: No
  Sender: FDA-Public Use
  Company Number: US-AMGEN-KDL199938

PATIENT
  Sex: Female

DRUGS (3)
  1. ENBREL [Suspect]
     Indication: RHEUMATOID ARTHRITIS
     Route: 058
     Dates: start: 20041101
  2. PLAQUENIL [Concomitant]
     Dates: start: 20010101
  3. METHOTREXATE [Concomitant]
     Dates: start: 20050601

REACTIONS (1)
  - INJECTION SITE PAIN [None]
